FAERS Safety Report 8193784-0 (Version None)
Quarter: 2012Q1

REPORT INFORMATION
  Report Type: 
  Country: None (occurrence: None)
  Receive Date: 20120308
  Receipt Date: 20120305
  Transmission Date: 20120608
  Serious: Yes (Hospitalization, Other)
  Sender: FDA-Public Use
  Company Number: CA-PFIZER INC-2012058140

PATIENT
  Age: 75 Year
  Sex: Male

DRUGS (2)
  1. LIPITOR [Suspect]
     Indication: BLOOD CHOLESTEROL INCREASED
     Dosage: 10 MG, 1X/DAY
     Route: 048
     Dates: end: 20111201
  2. LIPITOR [Suspect]
     Dosage: 40 MG PER DAY
     Route: 048
     Dates: start: 20111201

REACTIONS (3)
  - MYOCARDIAL INFARCTION [None]
  - MYALGIA [None]
  - RENAL FAILURE [None]
